FAERS Safety Report 18356142 (Version 2)
Quarter: 2020Q4

REPORT INFORMATION
  Report Type: Spontaneous
  Country: RU (occurrence: RU)
  Receive Date: 20201007
  Receipt Date: 20201203
  Transmission Date: 20210114
  Serious: Yes (Other)
  Sender: FDA-Public Use
  Company Number: RU-SA-2020SA270788

PATIENT

DRUGS (4)
  1. INSULIN HUMAN REGULAR [Suspect]
     Active Substance: INSULIN HUMAN
     Indication: TYPE 1 DIABETES MELLITUS
     Dosage: 42 IU, TID
     Route: 058
     Dates: start: 202006, end: 202011
  2. TOUJEO [Suspect]
     Active Substance: INSULIN GLARGINE
     Dosage: 60 IU, BID
     Route: 058
     Dates: start: 202009, end: 202009
  3. TOUJEO [Suspect]
     Active Substance: INSULIN GLARGINE
     Indication: TYPE 1 DIABETES MELLITUS
     Dosage: 60 IU, BID
     Route: 058
     Dates: start: 2018, end: 202009
  4. LANTUS [Concomitant]
     Active Substance: INSULIN GLARGINE
     Indication: TYPE 1 DIABETES MELLITUS
     Dosage: UNKNOWN
     Route: 058
     Dates: start: 2013, end: 2018

REACTIONS (4)
  - Hyperglycaemia [Not Recovered/Not Resolved]
  - Arrhythmia [Not Recovered/Not Resolved]
  - Inappropriate schedule of product administration [Unknown]
  - Dyspnoea [Not Recovered/Not Resolved]

NARRATIVE: CASE EVENT DATE: 2018
